FAERS Safety Report 5274326-6 (Version None)
Quarter: 2007Q1

REPORT INFORMATION
  Report Type: 
  Country: None (occurrence: None)
  Receive Date: 20070323
  Receipt Date: 20061208
  Transmission Date: 20070707
  Serious: Yes (Other)
  Sender: FDA-Public Use
  Company Number: US-PFIZER INC-2007021117

PATIENT

DRUGS (1)
  1. GEODON [Suspect]
     Dosage: TEXT:UNKNOWN

REACTIONS (1)
  - LOSS OF CONSCIOUSNESS [None]
